FAERS Safety Report 5837584-2 (Version None)
Quarter: 2008Q3

REPORT INFORMATION
  Report Type: 
  Country: None (occurrence: None)
  Receive Date: 20080807
  Receipt Date: 20080729
  Transmission Date: 20090109
  Serious: Yes (Hospitalization)
  Sender: FDA-Public Use
  Company Number: DE-AMGEN-UK298260

PATIENT
  Age: 68 Year
  Sex: Female

DRUGS (3)
  1. KINERET [Suspect]
     Indication: RHEUMATOID ARTHRITIS
     Route: 065
     Dates: start: 20020501, end: 20030301
  2. ETANERCEPT [Suspect]
     Route: 065
     Dates: start: 20040801, end: 20060901
  3. METHOTREXATE [Suspect]

REACTIONS (1)
  - RECTAL CANCER [None]
